FAERS Safety Report 4539235-6 (Version None)
Quarter: 2004Q4

REPORT INFORMATION
  Report Type: 
  Country: None (occurrence: None)
  Receive Date: 20041227
  Receipt Date: 20041227
  Transmission Date: 20050328
  Serious: Yes (Other)
  Sender: FDA-Public Use
  Company Number: None

PATIENT
  Sex: Female
  Weight: 45.3597 kg

DRUGS (2)
  1. PAXIL [Suspect]
     Indication: DEPRESSION
     Dosage: 20 MG   ONCE DAILY    ORAL
     Route: 048
     Dates: start: 20030105, end: 20041225
  2. PAXIL [Suspect]
     Indication: STRESS SYMPTOMS
     Dosage: 20 MG   ONCE DAILY    ORAL
     Route: 048
     Dates: start: 20030105, end: 20041225

REACTIONS (11)
  - ANXIETY [None]
  - CONDITION AGGRAVATED [None]
  - DEPRESSION [None]
  - FEELING ABNORMAL [None]
  - INSOMNIA [None]
  - IRRITABILITY [None]
  - LOSS OF LIBIDO [None]
  - MOOD ALTERED [None]
  - NERVOUS SYSTEM DISORDER [None]
  - STRESS SYMPTOMS [None]
  - SUICIDAL IDEATION [None]
